FAERS Safety Report 6166227-6 (Version None)
Quarter: 2009Q2

REPORT INFORMATION
  Report Type: 
  Country: None (occurrence: None)
  Receive Date: 20090424
  Receipt Date: 20090415
  Transmission Date: 20091009
  Serious: Yes (Hospitalization, Other)
  Sender: FDA-Public Use
  Company Number: PHHY2009QA14275

PATIENT

DRUGS (1)
  1. DICLOFENAC [Suspect]
     Route: 030

REACTIONS (15)
  - BLOOD CREATINE PHOSPHOKINASE INCREASED [None]
  - EMBOLIA CUTIS MEDICAMENTOSA [None]
  - GAIT DISTURBANCE [None]
  - HAEMORRHAGE [None]
  - INJECTION SITE PAIN [None]
  - LIVEDO RETICULARIS [None]
  - MASS [None]
  - MUSCLE DISORDER [None]
  - MUSCLE INJURY [None]
  - MUSCLE NECROSIS [None]
  - MYOGLOBIN BLOOD INCREASED [None]
  - PAIN [None]
  - PALLOR [None]
  - RASH ERYTHEMATOUS [None]
  - RASH PRURITIC [None]
